FAERS Safety Report 26105313 (Version 2)
Quarter: 2025Q4

REPORT INFORMATION
  Report Type: Spontaneous
  Country: EU (occurrence: EU)
  Receive Date: 20251201
  Receipt Date: 20251205
  Transmission Date: 20260118
  Serious: Yes (Other)
  Sender: CELLTRION
  Company Number: EU-ABBVIE-6474604

PATIENT

DRUGS (4)
  1. ADALIMUMAB [Suspect]
     Active Substance: ADALIMUMAB
     Indication: Ankylosing spondylitis
     Dosage: 40 MILLIGRAM, Q2WK, MAINTENANCE THERAPY/ 40 MILLIGRAM, Q2WEEKS, 40 MG, BIW; MAINTENANCE THERAPY
     Route: 058
  2. ADALIMUMAB [Suspect]
     Active Substance: ADALIMUMAB
     Indication: Crohn^s disease
     Dosage: 80 MILLIGRAM, 1/WEEK, 40 MG, BIW / 40 MILLIGRAM, Q2WK, MAINTENANCE THERAPY
     Route: 058
  3. ADALIMUMAB [Suspect]
     Active Substance: ADALIMUMAB
     Dosage: 40 MILLIGRAM, EVERY 0.5 WEEKS
     Route: 058
  4. ADALIMUMAB [Suspect]
     Active Substance: ADALIMUMAB
     Dosage: 40 MILLIGRAM, Q2WK, MAINTENANCE THERAPY
     Route: 058

REACTIONS (3)
  - Paradoxical skin reaction [Recovered/Resolved]
  - Subcorneal pustular dermatosis [Recovered/Resolved]
  - Intentional product use issue [Recovered/Resolved]
